FAERS Safety Report 4455765-X (Version None)
Quarter: 2004Q3

REPORT INFORMATION
  Report Type: 
  Country: None (occurrence: None)
  Receive Date: 20040920
  Receipt Date: 20040907
  Transmission Date: 20050211
  Serious: Yes (Hospitalization)
  Sender: FDA-Public Use
  Company Number: 04P-163-0272649-00

PATIENT
  Age: 48 Year
  Sex: Female
  Weight: 62.1428 kg

DRUGS (3)
  1. HUMIRA [Suspect]
     Indication: RHEUMATOID ARTHRITIS
     Dosage: 40 MG, 1 IN 2 WK, SUCBUTANEOUS
     Route: 058
     Dates: start: 20030101
  2. PREDNISONE [Concomitant]
  3. RISEDRONATE SODIUM [Concomitant]

REACTIONS (3)
  - BLOOD PRESSURE INCREASED [None]
  - MIGRAINE [None]
  - PARAESTHESIA [None]
